FAERS Safety Report 16007666 (Version 1)
Quarter: 2019Q1

REPORT INFORMATION
  Report Type: Spontaneous
  Country: FR (occurrence: FR)
  Receive Date: 20190226
  Receipt Date: 20190226
  Transmission Date: 20190418
  Serious: Yes (Hospitalization)
  Sender: FDA-Public Use
  Company Number: FR-TAKEDA-2019TUS010212

PATIENT
  Age: 83 Year
  Sex: Female
  Weight: 79 kg

DRUGS (10)
  1. NORMACOL                           /00086101/ [Concomitant]
     Active Substance: SULFAMETHOXAZOLE\TRIMETHOPRIM
     Dosage: UNK
     Route: 048
  2. VOLTARENACTIGO [Concomitant]
     Dosage: UNK
     Route: 048
  3. TAMOXIFEN [Suspect]
     Active Substance: TAMOXIFEN
     Indication: BREAST CANCER
     Dosage: 20 MILLIGRAM, QD
     Route: 048
     Dates: start: 2015, end: 2018
  4. L-THYROXIN HENNING [Suspect]
     Active Substance: LEVOTHYROXINE SODIUM
     Indication: HYPOTHYROIDISM
     Dosage: 100 MICROGRAM, QD
     Route: 048
  5. XELEVIA [Suspect]
     Active Substance: SITAGLIPTIN PHOSPHATE
     Indication: TYPE 2 DIABETES MELLITUS
     Dosage: 50 MILLIGRAM, QD
     Route: 048
  6. GAVISCON                           /00237601/ [Concomitant]
     Active Substance: ALUMINUM HYDROXIDE\MAGNESIUM CARBONATE
     Dosage: UNK
     Route: 048
  7. ADENURIC [Suspect]
     Active Substance: FEBUXOSTAT
     Indication: CHONDROCALCINOSIS
     Dosage: 80 MILLIGRAM, QD
     Route: 048
  8. COLCHIMAX                          /00728901/ [Suspect]
     Active Substance: COLCHICINE\DICYCLOMINE HYDROCHLORIDE
     Indication: CHONDROCALCINOSIS
     Dosage: UNK
     Route: 048
  9. METEOSPASMYL (ALVERINE CITRATE\DIMETHICONE) [Concomitant]
     Active Substance: ALVERINE CITRATE\DIMETHICONE
     Dosage: UNK
     Route: 048
  10. DOLIPRANE [Concomitant]
     Active Substance: ACETAMINOPHEN
     Dosage: UNK
     Route: 048

REACTIONS (8)
  - Asthenia [Not Recovered/Not Resolved]
  - Still^s disease [Not Recovered/Not Resolved]
  - Hyperthermia [Recovered/Resolved]
  - Off label use [Not Recovered/Not Resolved]
  - Hyperferritinaemia [Recovering/Resolving]
  - Neutrophilia [Not Recovered/Not Resolved]
  - Decreased appetite [Unknown]
  - C-reactive protein increased [Recovering/Resolving]

NARRATIVE: CASE EVENT DATE: 2018
